FAERS Safety Report 6388854-3 (Version None)
Quarter: 2009Q4

REPORT INFORMATION
  Report Type: 
  Country: None (occurrence: None)
  Receive Date: 20091005
  Receipt Date: 20090924
  Transmission Date: 20100525
  Serious: Yes (Disabling, Other)
  Sender: FDA-Public Use
  Company Number: FI-AMGEN-US360271

PATIENT
  Sex: Male

DRUGS (16)
  1. ENBREL [Suspect]
     Indication: RHEUMATOID ARTHRITIS
     Route: 058
     Dates: start: 20030909, end: 20031117
  2. HUMIRA [Suspect]
     Indication: RHEUMATOID ARTHRITIS
     Route: 058
     Dates: start: 20021101, end: 20030901
  3. METHOTREXATE [Suspect]
     Indication: RHEUMATOID ARTHRITIS
     Route: 048
     Dates: start: 19910101, end: 20090716
  4. REMICADE [Suspect]
     Indication: RHEUMATOID ARTHRITIS
     Route: 042
     Dates: start: 20011101, end: 20020701
  5. MABTHERA [Concomitant]
     Indication: RHEUMATOID ARTHRITIS
     Dosage: 500 MG EVERY 1 TOT
     Route: 042
     Dates: start: 20051108, end: 20051108
  6. MABTHERA [Concomitant]
     Dosage: 500 MG EVERY 1 TOT
     Route: 042
     Dates: start: 20051122, end: 20051122
  7. MABTHERA [Concomitant]
     Route: 042
     Dates: start: 20090701, end: 20090715
  8. MABTHERA [Concomitant]
     Dosage: UNSPECIFIED DOSE AND FREQUENCY
     Route: 042
     Dates: start: 20060101, end: 20060101
  9. MABTHERA [Concomitant]
     Dosage: UNSPECIFIED DOSE AND FREQUENCY
     Route: 042
     Dates: start: 20070101, end: 20070201
  10. BURANA [Concomitant]
     Dosage: 800 MG EVERY 1 PRN
     Route: 048
  11. PREDNISONE TAB [Concomitant]
     Route: 048
  12. CALCICHEW-D3 FORTE [Concomitant]
     Route: 048
  13. BONIVA [Concomitant]
  14. ATACAND [Concomitant]
     Route: 048
  15. THYROXIN [Concomitant]
     Dosage: 0,1 MG ONCE DAILY ON 5 WEEKDAYS AND 0,05 MG ONCE DAILY ON 2 WEEKDAYS
     Route: 048
  16. FOLIC ACID [Concomitant]
     Route: 048

REACTIONS (2)
  - DRUG INEFFECTIVE [None]
  - OPTIC NEUROPATHY [None]
